FAERS Safety Report 7034234-7 (Version None)
Quarter: 2010Q4

REPORT INFORMATION
  Report Type: 
  Country: None (occurrence: None)
  Receive Date: 20101008
  Receipt Date: 20100930
  Transmission Date: 20110411
  Serious: Yes (Hospitalization)
  Sender: FDA-Public Use
  Company Number: US-BIOGENIDEC-2010BI033910

PATIENT
  Age: 57 Year
  Sex: Female
  Weight: 80 kg

DRUGS (3)
  1. AVONEX [Suspect]
     Indication: MULTIPLE SCLEROSIS
     Route: 030
     Dates: start: 19970601
  2. AVONEX [Suspect]
     Route: 030
  3. BACLOFEN [Concomitant]
     Indication: NEUROPATHY PERIPHERAL

REACTIONS (12)
  - CARBOHYDRATE ANTIGEN 125 INCREASED [None]
  - CENTRAL VENOUS CATHETERISATION [None]
  - FATIGUE [None]
  - INFLUENZA LIKE ILLNESS [None]
  - LOCALISED INTRAABDOMINAL FLUID COLLECTION [None]
  - OVARIAN CANCER [None]
  - OVARIAN MASS [None]
  - PELVIC FLUID COLLECTION [None]
  - PROCEDURAL PAIN [None]
  - VAGINAL NEOPLASM [None]
  - WEIGHT INCREASED [None]
  - WHITE BLOOD CELL COUNT DECREASED [None]
